FAERS Safety Report 23986104 (Version 2)
Quarter: 2024Q2

REPORT INFORMATION
  Report Type: Spontaneous
  Country: JP (occurrence: JP)
  Receive Date: 20240618
  Receipt Date: 20240624
  Transmission Date: 20240716
  Serious: Yes (Other)
  Sender: FDA-Public Use
  Company Number: JP-MLMSERVICE-20240606-PI089889-00249-1

PATIENT
  Age: 68 Year
  Sex: Male

DRUGS (6)
  1. OXALIPLATIN [Suspect]
     Active Substance: OXALIPLATIN
     Indication: Gastric cancer stage IV
     Dosage: UNK UNK, QCY (RECEIVING 13 CYCLES)
  2. OXALIPLATIN [Suspect]
     Active Substance: OXALIPLATIN
     Indication: Metastases to liver
  3. GIMERACIL\OTERACIL\TEGAFUR [Suspect]
     Active Substance: GIMERACIL\OTERACIL POTASSIUM\TEGAFUR
     Indication: Gastric cancer stage IV
     Dosage: UNK UNK, QCY (RECEIVING 13 CYCLES)
  4. GIMERACIL\OTERACIL\TEGAFUR [Suspect]
     Active Substance: GIMERACIL\OTERACIL POTASSIUM\TEGAFUR
     Indication: Metastases to liver
  5. NIVOLUMAB [Suspect]
     Active Substance: NIVOLUMAB
     Indication: Metastases to liver
     Dosage: UNK UNK, QCY (RECEIVING 13 CYCLES)
  6. NIVOLUMAB [Suspect]
     Active Substance: NIVOLUMAB
     Indication: Gastric cancer stage IV
     Dosage: UNK UNK, QCY (THREE ADDITIONAL CYCLES)

REACTIONS (5)
  - Drug-induced liver injury [Recovering/Resolving]
  - Thrombocytopenia [Recovering/Resolving]
  - Hepatic function abnormal [Recovering/Resolving]
  - Venoocclusive liver disease [Unknown]
  - Neuropathy peripheral [Unknown]
